FAERS Safety Report 10262318 (Version 1)
Quarter: 2014Q2

REPORT INFORMATION
  Report Type: Report from Study
  Country: US (occurrence: US)
  Receive Date: 20140626
  Receipt Date: 20140626
  Transmission Date: 20141212
  Serious: Yes (Hospitalization)
  Sender: FDA-Public Use
  Company Number: US-BAYER-2014-092531

PATIENT
  Age: 81 Year
  Sex: Female

DRUGS (3)
  1. BETASERON [Suspect]
     Indication: RELAPSING-REMITTING MULTIPLE SCLEROSIS
     Dosage: UNK
     Route: 058
     Dates: start: 20121108, end: 20130321
  2. BETASERON [Suspect]
     Indication: RELAPSING-REMITTING MULTIPLE SCLEROSIS
     Dosage: 8 MIU, QOD
     Route: 058
     Dates: start: 20130610
  3. TYLENOL [PARACETAMOL] [Concomitant]
     Indication: PREMEDICATION
     Dosage: UNK UNK, QOD

REACTIONS (1)
  - Abdominal pain upper [Not Recovered/Not Resolved]
